FAERS Safety Report 5001033-7 (Version None)
Quarter: 2006Q2

REPORT INFORMATION
  Report Type: 
  Country: None (occurrence: None)
  Receive Date: 20060512
  Receipt Date: 20060309
  Transmission Date: 20061013
  Serious: Yes (Other)
  Sender: FDA-Public Use
  Company Number: FR-GLAXOSMITHKLINE-B0416045A

PATIENT
  Age: 55 Year
  Sex: Male
  Weight: 84 kg

DRUGS (2)
  1. ARIXTRA [Suspect]
     Dosage: 2.5MG PER DAY
     Route: 058
  2. KETOPROFEN [Concomitant]
     Dosage: 150MG TWICE PER DAY
     Route: 048

REACTIONS (4)
  - DIFFICULTY IN WALKING [None]
  - HAEMATOMA [None]
  - JOINT RANGE OF MOTION DECREASED [None]
  - THROMBOSIS [None]
